FAERS Safety Report 4428982-2 (Version None)
Quarter: 2004Q3

REPORT INFORMATION
  Report Type: 
  Country: None (occurrence: None)
  Receive Date: 20040818
  Receipt Date: 20030619
  Transmission Date: 20050211
  Serious: Yes (Death, Disabling)
  Sender: FDA-Public Use
  Company Number: PHHO2003JP07971

PATIENT
  Age: 83 Year
  Sex: Female

DRUGS (9)
  1. FUNGUARD [Concomitant]
  2. NEORAL [Suspect]
     Indication: APLASTIC ANAEMIA
     Dosage: 150 MG DAILY DOSE
     Route: 048
     Dates: start: 20011121, end: 20011121
  3. NEORAL [Suspect]
     Dosage: 250 MG DAILY DOSE
     Route: 048
     Dates: start: 20011122, end: 20011203
  4. NEORAL [Suspect]
     Dosage: 200 MG DAILY DOSE
     Route: 048
     Dates: start: 20011204, end: 20011210
  5. NEORAL [Suspect]
     Dosage: 150 MG DAILY DOSE
     Route: 048
     Dates: start: 20011211, end: 20021216
  6. PRIMOBOLAN-DEPOT INJ [Concomitant]
  7. NEUTROGIN [Concomitant]
  8. VANCOMYCIN HYDROCHLORIDE [Concomitant]
  9. PONTAL [Concomitant]

REACTIONS (9)
  - BLAST CELLS PRESENT [None]
  - BONE MARROW DEPRESSION [None]
  - FEMORAL NECK FRACTURE [None]
  - INFECTION [None]
  - MYELODYSPLASTIC SYNDROME [None]
  - NEPHROPATHY [None]
  - PAIN IN EXTREMITY [None]
  - PANCYTOPENIA [None]
  - RENAL IMPAIRMENT [None]
